FAERS Safety Report 14611666 (Version 4)
Quarter: 2018Q2

REPORT INFORMATION
  Report Type: Report from Study
  Country: US (occurrence: US)
  Receive Date: 20180308
  Receipt Date: 20180628
  Transmission Date: 20180711
  Serious: Yes (Death, Hospitalization, Other)
  Sender: FDA-Public Use
  Company Number: US-GILEAD-2018-0324574

PATIENT
  Age: 78 Year
  Sex: Male

DRUGS (1)
  1. AMBRISENTAN [Suspect]
     Active Substance: AMBRISENTAN
     Indication: PRODUCT USED FOR UNKNOWN INDICATION
     Dosage: 10 MG, QD
     Route: 065
     Dates: start: 20171124

REACTIONS (5)
  - Death [Fatal]
  - Skin cancer [Unknown]
  - Lung neoplasm malignant [Unknown]
  - Brain neoplasm [Unknown]
  - Transfusion [Unknown]

NARRATIVE: CASE EVENT DATE: 20180625
